FAERS Safety Report 21721727 (Version 1)
Quarter: 2022Q4

REPORT INFORMATION
  Report Type: Spontaneous
  Country: US (occurrence: None)
  Receive Date: 20221212
  Receipt Date: 20221212
  Transmission Date: 20230113
  Serious: Yes (Hospitalization)
  Sender: FDA-Public Use
  Company Number: None

PATIENT
  Age: 76 Year
  Sex: Male
  Weight: 136.7 kg

DRUGS (1)
  1. SEMAGLUTIDE [Suspect]
     Active Substance: SEMAGLUTIDE
     Route: 058
     Dates: start: 20211201, end: 20221201

REACTIONS (2)
  - Pancreatitis acute [None]
  - Illness [None]

NARRATIVE: CASE EVENT DATE: 20221201
